FAERS Safety Report 4818594-0 (Version None)
Quarter: 2005Q4

REPORT INFORMATION
  Report Type: 
  Country: None (occurrence: None)
  Receive Date: 20051101
  Receipt Date: 20051021
  Transmission Date: 20060501
  Serious: Yes (Hospitalization, Other)
  Sender: FDA-Public Use
  Company Number: KII-2005-0019242

PATIENT
  Age: 26 Year
  Sex: Male

DRUGS (3)
  1. MORPHINE SULFATE [Suspect]
     Indication: DRUG USE FOR UNKNOWN INDICATION
     Dosage: ORAL
     Route: 048
  2. COCAINE(COCAINE) [Suspect]
     Indication: INTENTIONAL DRUG MISUSE
  3. CANNABIS (CANNABIS) [Suspect]
     Indication: INTENTIONAL DRUG MISUSE

REACTIONS (6)
  - ATRIAL FIBRILLATION [None]
  - BODY TEMPERATURE DECREASED [None]
  - HEART RATE INCREASED [None]
  - LETHARGY [None]
  - OVERDOSE [None]
  - POLYSUBSTANCE ABUSE [None]
